FAERS Safety Report 5404991-1 (Version None)
Quarter: 2007Q3

REPORT INFORMATION
  Report Type: 
  Country: None (occurrence: None)
  Receive Date: 20070801
  Receipt Date: 20070726
  Transmission Date: 20080115
  Serious: Yes (Death, Hospitalization)
  Sender: FDA-Public Use
  Company Number: CLOF-10613

PATIENT
  Age: 66 Year
  Sex: Female
  Weight: 65.374 kg

DRUGS (34)
  1. CLOFARABINE. MFR: GENZYME [Suspect]
     Indication: ACUTE MYELOID LEUKAEMIA
     Dosage: 67 MG QD X 5 IV
     Route: 042
     Dates: start: 20070710, end: 20070714
  2. CYTARABINE [Suspect]
     Indication: ACUTE MYELOID LEUKAEMIA
     Dosage: 3340 MG QD IV
     Route: 042
     Dates: start: 20070710, end: 20070712
  3. VANCOMYCIN [Concomitant]
  4. ACYCLOVIR SODIUM [Concomitant]
  5. AZTREONAM [Concomitant]
  6. CHLORHEXIDINE GLUCONATE [Concomitant]
  7. CIPROFLOXACIN [Concomitant]
  8. IMMUNE GLOBULIN (HUMAN) [Concomitant]
  9. MICAFUNGIN SODIUM [Concomitant]
  10. METHYLPREDNISOLONE [Concomitant]
  11. PANTOPRAZOLE SODIUM [Concomitant]
  12. POTASSIUM CHLORIDE [Concomitant]
  13. TRIAMCINOLONE TOPICAL [Concomitant]
  14. ALBUTEROL [Concomitant]
  15. FENTANYL [Concomitant]
  16. LORAZEPAM [Concomitant]
  17. NOREPINEPHRINE BITARTRATE [Concomitant]
  18. PHENYLEPHRINE [Concomitant]
  19. ALLOPURINOL [Concomitant]
  20. AMILORIDE HYDROCHLORIDE [Concomitant]
  21. FEXOFENADINE [Concomitant]
  22. FLUCONAZOLE [Concomitant]
  23. ACETAMINOPHEN [Concomitant]
  24. DIPHENHYDRAMINE HCL [Concomitant]
  25. HYDROCORTISONE [Concomitant]
  26. POLYVINYL ALCOHOL [Concomitant]
  27. PREDNISOLONE [Concomitant]
  28. MORPHINE [Concomitant]
  29. PROMETHAZINE [Concomitant]
  30. ZOLPIDEM TARTRATE [Concomitant]
  31. CALCIUM POLYCARBOPHIL [Concomitant]
  32. OXYCODONE HCL [Concomitant]
  33. ONDANSETRON [Concomitant]
  34. CEFEPIME [Concomitant]

REACTIONS (23)
  - ACIDOSIS [None]
  - AORTIC VALVE SCLEROSIS [None]
  - ATELECTASIS [None]
  - COGNITIVE DISORDER [None]
  - COLLAPSE OF LUNG [None]
  - DIALYSIS [None]
  - DIARRHOEA [None]
  - DRUG TOXICITY [None]
  - HYPOTENSION [None]
  - LEFT VENTRICULAR HYPERTROPHY [None]
  - NERVOUS SYSTEM DISORDER [None]
  - NEUTROPENIC INFECTION [None]
  - OPPORTUNISTIC INFECTION [None]
  - OXYGEN SATURATION DECREASED [None]
  - PLEURAL EFFUSION [None]
  - PULMONARY HYPERTENSION [None]
  - RENAL FAILURE [None]
  - RESPIRATORY FAILURE [None]
  - SEPTIC SHOCK [None]
  - SINUS TACHYCARDIA [None]
  - SKIN TOXICITY [None]
  - TOXIC EPIDERMAL NECROLYSIS [None]
  - TREMOR [None]
